FAERS Safety Report 12682010 (Version 2)
Quarter: 2016Q4

REPORT INFORMATION
  Report Type: Spontaneous
  Country: US (occurrence: US)
  Receive Date: 20160824
  Receipt Date: 20161114
  Transmission Date: 20170207
  Serious: No
  Sender: FDA-Public Use
  Company Number: US-SHIRE-US201610961

PATIENT

DRUGS (1)
  1. ELAPRASE [Suspect]
     Active Substance: IDURSULFASE
     Indication: MUCOPOLYSACCHARIDOSIS II
     Dosage: UNK UNK, UNKNOWN
     Route: 041
     Dates: start: 20150612

REACTIONS (2)
  - Urticaria [Unknown]
  - Infusion related reaction [Unknown]
